FAERS Safety Report 9702138 (Version 1)
Quarter: 2013Q4

REPORT INFORMATION
  Report Type: Report from Study
  Country: CA (occurrence: CA)
  Receive Date: 20131121
  Receipt Date: 20131121
  Transmission Date: 20140711
  Serious: Yes (Other)
  Sender: FDA-Public Use
  Company Number: CA-ROCHE-1304032

PATIENT
  Age: 10 Year
  Sex: Female
  Weight: 25 kg

DRUGS (15)
  1. ACTEMRA [Suspect]
     Indication: JUVENILE IDIOPATHIC ARTHRITIS
     Route: 042
     Dates: start: 20121211, end: 20130714
  2. ACTEMRA [Suspect]
     Indication: LUNG DISORDER
     Route: 042
     Dates: start: 20130323
  3. ACTEMRA [Suspect]
     Route: 042
     Dates: end: 20130714
  4. VENTOLIN [Concomitant]
  5. ALVESCO [Concomitant]
  6. AVAMYS [Concomitant]
  7. ZOVIRAX [Concomitant]
  8. VOLTAREN [Concomitant]
  9. EMO-CORT [Concomitant]
  10. FOLIC ACID [Concomitant]
  11. INDOMETHACIN [Concomitant]
  12. PREDNISOLONE [Concomitant]
  13. LOSEC (CANADA) [Concomitant]
  14. ACYCLOVIR [Concomitant]
  15. KINERET [Concomitant]

REACTIONS (1)
  - Interstitial lung disease [Recovered/Resolved]
